FAERS Safety Report 7574972-0 (Version None)
Quarter: 2011Q2

REPORT INFORMATION
  Report Type: 
  Country: None (occurrence: None)
  Receive Date: 20110627
  Receipt Date: 20110120
  Transmission Date: 20111010
  Serious: Yes (Hospitalization, Other)
  Sender: FDA-Public Use
  Company Number: US-BAYER-201040987NA

PATIENT
  Age: 34 Year
  Sex: Female
  Weight: 47 kg

DRUGS (4)
  1. YASMIN [Suspect]
     Indication: ACNE
     Dosage: UNK UNK, UNK
     Route: 048
     Dates: start: 20030201, end: 20060501
  2. YASMIN [Suspect]
     Indication: CONTRACEPTION
  3. YASMIN [Suspect]
     Indication: PREMENSTRUAL SYNDROME
  4. LEVOTHYROXINE SODIUM [Concomitant]

REACTIONS (3)
  - MENORRHAGIA [None]
  - MENTAL DISORDER [None]
  - PULMONARY EMBOLISM [None]
